FAERS Safety Report 15997131 (Version 3)
Quarter: 2019Q1

REPORT INFORMATION
  Report Type: Spontaneous
  Country: US (occurrence: US)
  Receive Date: 20190222
  Receipt Date: 20190307
  Transmission Date: 20190418
  Serious: No
  Sender: FDA-Public Use
  Company Number: US-SA-2019SA042831

PATIENT
  Age: 69 Year
  Sex: Female

DRUGS (1)
  1. TOUJEO [Suspect]
     Active Substance: INSULIN GLARGINE
     Indication: TYPE 2 DIABETES MELLITUS
     Dosage: 17 U, QD

REACTIONS (6)
  - Product contamination physical [Unknown]
  - Hyperhidrosis [Unknown]
  - Device operational issue [Unknown]
  - Glycosylated haemoglobin decreased [Recovered/Resolved]
  - Dizziness [Unknown]
  - Blood glucose decreased [Unknown]
